FAERS Safety Report 11967206 (Version 1)
Quarter: 2016Q1

REPORT INFORMATION
  Report Type: Report from Study
  Country: AR (occurrence: AR)
  Receive Date: 20160127
  Receipt Date: 20160127
  Transmission Date: 20160526
  Serious: Yes (Hospitalization)
  Sender: FDA-Public Use
  Company Number: AR-ABBVIE-16K-007-1543282-00

PATIENT
  Age: 79 Year
  Sex: Female

DRUGS (1)
  1. HUMIRA [Suspect]
     Active Substance: ADALIMUMAB
     Indication: RHEUMATOID ARTHRITIS
     Route: 058
     Dates: start: 20150105

REACTIONS (4)
  - Fall [Not Recovered/Not Resolved]
  - Gait disturbance [Recovering/Resolving]
  - Loss of consciousness [Recovering/Resolving]
  - Injury [Recovering/Resolving]

NARRATIVE: CASE EVENT DATE: 201512
